FAERS Safety Report 21401036 (Version 3)
Quarter: 2022Q4

REPORT INFORMATION
  Report Type: Spontaneous
  Country: CA (occurrence: CA)
  Receive Date: 20221003
  Receipt Date: 20221222
  Transmission Date: 20230113
  Serious: Yes (Death, Hospitalization, Other)
  Sender: FDA-Public Use
  Company Number: CA-ADVANZ PHARMA-202209006272

PATIENT
  Age: 85 Year
  Sex: Female

DRUGS (3)
  1. OCALIVA [Suspect]
     Active Substance: OBETICHOLIC ACID
     Indication: Primary biliary cholangitis
     Dosage: 5 MG, QD (OCALIVA)
     Dates: start: 20180222
  2. URSO [Concomitant]
     Active Substance: URSODIOL
     Indication: Primary biliary cholangitis
     Dosage: 1000 MG, QD (QPM)
  3. URSO [Concomitant]
     Active Substance: URSODIOL
     Dosage: 1000 MG, QD (QPM)

REACTIONS (4)
  - Death [Fatal]
  - Hospitalisation [Unknown]
  - Peripheral swelling [Unknown]
  - Skin weeping [Unknown]

NARRATIVE: CASE EVENT DATE: 20220919
